FAERS Safety Report 11880879 (Version 1)
Quarter: 2015Q4

REPORT INFORMATION
  Report Type: Report from Study
  Country: BR (occurrence: BR)
  Receive Date: 20151230
  Receipt Date: 20151230
  Transmission Date: 20160305
  Serious: Yes (Hospitalization, Other)
  Sender: FDA-Public Use
  Company Number: BR-ABBVIE-15K-020-1527990-00

PATIENT
  Age: 31 Year
  Sex: Male
  Weight: 81 kg

DRUGS (1)
  1. HUMIRA [Suspect]
     Active Substance: ADALIMUMAB
     Indication: ANKYLOSING SPONDYLITIS
     Route: 058
     Dates: start: 20110101, end: 20151214

REACTIONS (7)
  - Drug ineffective [Not Recovered/Not Resolved]
  - Pain [Not Recovered/Not Resolved]
  - Meniscus injury [Unknown]
  - Synovitis [Unknown]
  - Arthritis [Unknown]
  - Foot deformity [Unknown]
  - Epicondylitis [Unknown]

NARRATIVE: CASE EVENT DATE: 201504
